FAERS Safety Report 7720532-8 (Version None)
Quarter: 2011Q3

REPORT INFORMATION
  Report Type: 
  Country: None (occurrence: None)
  Receive Date: 20110831
  Receipt Date: 20110831
  Transmission Date: 20111222
  Serious: Yes (Death)
  Sender: FDA-Public Use
  Company Number: None

PATIENT
  Age: 66 Year
  Sex: Female
  Weight: 793.78 kg

DRUGS (1)
  1. CLINDAMYCIN [Suspect]

REACTIONS (2)
  - INFECTION [None]
  - GASTROINTESTINAL DISORDER [None]
